FAERS Safety Report 7198199-X (Version None)
Quarter: 2010Q4

REPORT INFORMATION
  Report Type: 
  Country: None (occurrence: None)
  Receive Date: 20101223
  Receipt Date: 20101223
  Transmission Date: 20110411
  Serious: Yes (Other)
  Sender: FDA-Public Use
  Company Number: None

PATIENT
  Age: 57 Year
  Sex: Male
  Weight: 95.709 kg

DRUGS (2)
  1. DILTIAZEM 180MG CVS [Suspect]
     Indication: HYPERTENSION
     Dosage: 180 MG DAILY
     Dates: start: 20101213, end: 20101221
  2. DILTIAZEM 180MG CVS [Suspect]
     Indication: PALPITATIONS
     Dosage: 180 MG DAILY
     Dates: start: 20101213, end: 20101221

REACTIONS (9)
  - ABDOMINAL DISTENSION [None]
  - CHEST PAIN [None]
  - FLATULENCE [None]
  - GASTROOESOPHAGEAL REFLUX DISEASE [None]
  - INFLUENZA LIKE ILLNESS [None]
  - MUSCLE SPASMS [None]
  - PAIN [None]
  - THROAT TIGHTNESS [None]
  - URTICARIA [None]
